FAERS Safety Report 10156155 (Version 2)
Quarter: 2014Q2

REPORT INFORMATION
  Report Type: Report from Study
  Country: US (occurrence: US)
  Receive Date: 20140506
  Receipt Date: 20140521
  Transmission Date: 20141212
  Serious: Yes (Hospitalization)
  Sender: FDA-Public Use
  Company Number: US-ACTELION-A-NJ2014-98512

PATIENT
  Age: 55 Year
  Sex: Female

DRUGS (5)
  1. VENTAVIS [Suspect]
     Indication: COR PULMONALE CHRONIC
     Dosage: 5 MCG, 3-6XDAILY
     Route: 055
     Dates: start: 20110726
  2. COUMADIN [Concomitant]
  3. REVATIO [Concomitant]
  4. LETAIRIS [Concomitant]
  5. OXYGEN [Concomitant]
     Dosage: UNK

REACTIONS (2)
  - Dehydration [Recovered/Resolved]
  - Pyrexia [Recovered/Resolved]
